FAERS Safety Report 9117187 (Version 2)
Quarter: 2013Q4

REPORT INFORMATION
  Report Type: Spontaneous
  Country: GB (occurrence: GB)
  Receive Date: 20130128
  Receipt Date: 20131024
  Transmission Date: 20140711
  Serious: Yes (Other)
  Sender: FDA-Public Use
  Company Number: GB-MYLANLABS-2013S1001116

PATIENT
  Age: 30 Year
  Sex: Female
  Weight: 68.5 kg

DRUGS (9)
  1. VENLAFAXINE [Suspect]
     Indication: ANXIETY
     Route: 048
  2. VENLAFAXINE [Suspect]
     Indication: DEPRESSION
     Route: 048
  3. ZOPICLONE [Suspect]
     Indication: ANXIETY
     Route: 048
  4. ZOPICLONE [Suspect]
     Indication: DEPRESSION
     Route: 048
  5. AMITRIPTYLINE [Suspect]
     Indication: ANXIETY
     Route: 048
  6. AMITRIPTYLINE [Suspect]
     Indication: DEPRESSION
     Route: 048
  7. PROPRANOLOL [Suspect]
     Indication: ANXIETY
     Route: 048
  8. PROPRANOLOL [Suspect]
     Indication: DEPRESSION
     Route: 048
  9. DULOXETINE [Concomitant]
     Indication: PRODUCT USED FOR UNKNOWN INDICATION

REACTIONS (3)
  - Foetal death [Recovered/Resolved]
  - Premature separation of placenta [Unknown]
  - Exposure during pregnancy [Unknown]
